FAERS Safety Report 14239823 (Version 1)
Quarter: 2017Q4

REPORT INFORMATION
  Report Type: Report from Study
  Country: NZ (occurrence: NZ)
  Receive Date: 20171130
  Receipt Date: 20171130
  Transmission Date: 20180321
  Serious: Yes (Other)
  Sender: FDA-Public Use
  Company Number: NZ-BIOGEN-2016BI00275548

PATIENT
  Age: 47 Year
  Sex: Male

DRUGS (1)
  1. TECFIDERA [Suspect]
     Active Substance: DIMETHYL FUMARATE
     Indication: MULTIPLE SCLEROSIS
     Dosage: MAINTENANCE DOSE
     Route: 048
     Dates: start: 20160407

REACTIONS (11)
  - Dyspnoea [Recovered/Resolved]
  - Syncope [Recovered/Resolved with Sequelae]
  - Oesophageal obstruction [Recovered/Resolved]
  - Anxiety [Unknown]
  - Asthenopia [Unknown]
  - Odynophagia [Recovered/Resolved]
  - Hypoaesthesia [Recovered/Resolved with Sequelae]
  - Troponin increased [Unknown]
  - Vision blurred [Recovered/Resolved]
  - Dyspepsia [Recovered/Resolved]
  - Weight decreased [Unknown]

NARRATIVE: CASE EVENT DATE: 20160727
